FAERS Safety Report 5070088-6 (Version None)
Quarter: 2006Q3

REPORT INFORMATION
  Report Type: 
  Country: None (occurrence: None)
  Receive Date: 20060801
  Receipt Date: 20060801
  Transmission Date: 20061208
  Serious: Yes (Hospitalization)
  Sender: FDA-Public Use
  Company Number: None

PATIENT
  Age: 69 Year
  Sex: Male
  Weight: 70 kg

DRUGS (10)
  1. AMIODARONE HCL [Suspect]
     Indication: ATRIAL FIBRILLATION
     Dosage: 200 MG DAILY PO
     Route: 048
  2. ACCU-CHEK COMFORT CV-GLUCOSE- TEST STRIP [Concomitant]
  3. ATENOLOL [Concomitant]
  4. AZITHROMYCIN [Concomitant]
  5. DOXCYCLINE HYCLATE [Concomitant]
  6. FELODIPINE [Concomitant]
  7. LANCET [Concomitant]
  8. LISINOPRIL [Concomitant]
  9. NYSTATIN [Concomitant]
  10. PHYONADIONE [Concomitant]

REACTIONS (16)
  - ACUTE RESPIRATORY DISTRESS SYNDROME [None]
  - ATROPHY [None]
  - BONE DISORDER [None]
  - CHOLELITHIASIS [None]
  - DRUG TOXICITY [None]
  - DYSPHAGIA [None]
  - DYSPHONIA [None]
  - INFLAMMATION [None]
  - LUNG INJURY [None]
  - LUNG NEOPLASM MALIGNANT [None]
  - METASTASIS [None]
  - PLEURAL FIBROSIS [None]
  - PNEUMONIA STAPHYLOCOCCAL [None]
  - PULMONARY FIBROSIS [None]
  - SEPTIC EMBOLUS [None]
  - VOCAL CORD PARESIS [None]
